FAERS Safety Report 8481707-6 (Version None)
Quarter: 2012Q3

REPORT INFORMATION
  Report Type: 
  Country: None (occurrence: None)
  Receive Date: 20120702
  Receipt Date: 20120621
  Transmission Date: 20120928
  Serious: Yes (Other)
  Sender: FDA-Public Use
  Company Number: US-ASTRAZENECA-2012SE34902

PATIENT
  Age: 58 Year
  Sex: Male

DRUGS (5)
  1. PULMICORT [Suspect]
     Route: 055
     Dates: start: 20111019, end: 20120120
  2. PULMICORT [Suspect]
     Route: 055
     Dates: start: 20120121
  3. PULMICORT [Suspect]
     Route: 055
     Dates: start: 20120504
  4. PULMICORT [Suspect]
     Dosage: 200 MCG TWO INHALATIONS DAILY
     Route: 055
     Dates: start: 20120201
  5. PULMICORT [Suspect]
     Route: 055
     Dates: start: 20120529

REACTIONS (2)
  - CIRCUMSTANCE OR INFORMATION CAPABLE OF LEADING TO MEDICATION ERROR [None]
  - DYSPNOEA [None]
